FAERS Safety Report 21972212 (Version 5)
Quarter: 2023Q2

REPORT INFORMATION
  Report Type: Spontaneous
  Country: BR (occurrence: BR)
  Receive Date: 20230209
  Receipt Date: 20230628
  Transmission Date: 20230722
  Serious: Yes (Other)
  Sender: FDA-Public Use
  Company Number: BR-002147023-NVSC2023BR026928

PATIENT
  Age: 9 Year
  Sex: Female

DRUGS (2)
  1. LEUPROLIDE ACETATE [Suspect]
     Active Substance: LEUPROLIDE ACETATE
     Indication: Precocious puberty
     Dosage: UNK (CONCENTRATION: 3.75MG) (USED 4 MONTHS)
     Route: 065
  2. LEUPROLIDE ACETATE [Suspect]
     Active Substance: LEUPROLIDE ACETATE
     Dosage: 7.5 MG (CONCENTRATION: 7.5MG) (USING FOR 4 MONTHS)
     Route: 065

REACTIONS (3)
  - Haemorrhage [Unknown]
  - Wrong device used [Unknown]
  - Drug ineffective [Unknown]
